FAERS Safety Report 7683207-X (Version None)
Quarter: 2011Q3

REPORT INFORMATION
  Report Type: 
  Country: None (occurrence: None)
  Receive Date: 20110815
  Receipt Date: 20110808
  Transmission Date: 20111222
  Serious: Yes (Death, Hospitalization)
  Sender: FDA-Public Use
  Company Number: US-VERTEX PHARMACEUTICALS INC.-AE-2011-000789

PATIENT
  Sex: Female

DRUGS (3)
  1. INCIVEK [Suspect]
     Indication: HEPATITIS C
     Dates: start: 20110620
  2. RIBAVIRIN [Concomitant]
     Indication: HEPATITIS C
     Dates: start: 20110620
  3. PEGASYS [Concomitant]
     Indication: HEPATITIS C
     Dates: start: 20110620

REACTIONS (6)
  - RASH [None]
  - HEPATIC FAILURE [None]
  - ABDOMINAL PAIN [None]
  - THIRST [None]
  - DIARRHOEA [None]
  - DYSPNOEA [None]
